FAERS Safety Report 14716422 (Version 2)
Quarter: 2018Q2

REPORT INFORMATION
  Report Type: Report from Study
  Country: BR (occurrence: BR)
  Receive Date: 20180404
  Receipt Date: 20180514
  Transmission Date: 20180711
  Serious: Yes (Life-Threatening, Hospitalization)
  Sender: FDA-Public Use
  Company Number: PHHY2015BR086731

PATIENT
  Sex: Female
  Weight: 55 kg

DRUGS (5)
  1. EXJADE [Suspect]
     Active Substance: DEFERASIROX
     Dosage: 3 DF, QD
     Route: 048
  2. DEFERASIROX [Suspect]
     Active Substance: DEFERASIROX
     Indication: PRODUCT USED FOR UNKNOWN INDICATION
     Dosage: UNK
     Route: 042
     Dates: start: 2011
  3. EXJADE [Suspect]
     Active Substance: DEFERASIROX
     Indication: THALASSAEMIA BETA
     Dosage: 3 DF, QD
     Route: 048
     Dates: start: 2011
  4. ACIDO FOLICO//FOLIC ACID [Concomitant]
     Active Substance: FOLIC ACID
     Indication: PRODUCT USED FOR UNKNOWN INDICATION
     Route: 065
  5. EXJADE [Suspect]
     Active Substance: DEFERASIROX
     Dosage: 2 DF, UNK
     Route: 048

REACTIONS (13)
  - Oral pain [Unknown]
  - Type 1 diabetes mellitus [Not Recovered/Not Resolved]
  - Tonsillitis [Unknown]
  - Abdominal distension [Unknown]
  - Weight decreased [Unknown]
  - Malaise [Unknown]
  - Liver disorder [Not Recovered/Not Resolved]
  - Poisoning [Not Recovered/Not Resolved]
  - Burning sensation [Unknown]
  - Iron overload [Not Recovered/Not Resolved]
  - Syncope [Unknown]
  - Abdominal pain upper [Unknown]
  - Blood iron increased [Not Recovered/Not Resolved]
